FAERS Safety Report 8134596-3 (Version None)
Quarter: 2012Q1

REPORT INFORMATION
  Report Type: 
  Country: None (occurrence: None)
  Receive Date: 20120214
  Receipt Date: 20120214
  Transmission Date: 20120608
  Serious: Yes (Other)
  Sender: FDA-Public Use
  Company Number: US-PFIZER INC-2012030799

PATIENT
  Sex: Female
  Weight: 125 kg

DRUGS (6)
  1. CHANTIX [Suspect]
     Dosage: 0.5 MG, 2X/DAY
     Route: 048
     Dates: start: 20120201
  2. CHANTIX [Suspect]
     Indication: SMOKING CESSATION THERAPY
     Dosage: 0.5 MG, 1X/DAY
     Route: 048
     Dates: start: 20120203, end: 20120201
  3. LYRICA [Concomitant]
     Indication: OSTEOARTHRITIS
     Dosage: 75 MG, 3X/DAY
  4. LISINOPRIL [Concomitant]
     Indication: HYPERTENSION
     Dosage: 20 MG, DAILY
  5. NEXIUM [Concomitant]
     Indication: DYSPEPSIA
     Dosage: 20 MG, DAILY
  6. AMLODIPINE [Concomitant]
     Indication: HYPERTENSION
     Dosage: UNK

REACTIONS (14)
  - FLATULENCE [None]
  - POLYURIA [None]
  - NERVOUSNESS [None]
  - COUGH [None]
  - INCREASED APPETITE [None]
  - ANXIETY [None]
  - DYSPNOEA [None]
  - ABNORMAL BEHAVIOUR [None]
  - INAPPROPRIATE AFFECT [None]
  - THINKING ABNORMAL [None]
  - SPEECH DISORDER [None]
  - PANIC REACTION [None]
  - CONSTIPATION [None]
  - POLYDIPSIA [None]
